FAERS Safety Report 6631380-4 (Version None)
Quarter: 2010Q1

REPORT INFORMATION
  Report Type: 
  Country: None (occurrence: None)
  Receive Date: 20100312
  Receipt Date: 20100301
  Transmission Date: 20100710
  Serious: Yes (Hospitalization)
  Sender: FDA-Public Use
  Company Number: DE-JNJFOC-20070601430

PATIENT
  Age: 76 Year
  Sex: Female
  Weight: 64 kg

DRUGS (10)
  1. DOXORUBICIN HCL [Suspect]
     Indication: BREAST CANCER METASTATIC
     Dosage: 50 MG EVERY MORNING
     Route: 042
     Dates: start: 20070329, end: 20070524
  2. DOXORUBICIN HCL [Suspect]
     Dosage: 50 MG EVERY MORNING
     Route: 042
     Dates: start: 20070329, end: 20070524
  3. PANTOZOLE [Concomitant]
     Indication: GASTROINTESTINAL DISORDER THERAPY
     Route: 065
  4. FOSINOPRIL SODIUM [Concomitant]
     Indication: HYPERTENSION
  5. FOSINOPRIL SODIUM [Concomitant]
  6. ZOFRAN [Concomitant]
     Indication: PROPHYLAXIS OF NAUSEA AND VOMITING
  7. KEVATRIL [Concomitant]
     Indication: PROPHYLAXIS OF NAUSEA AND VOMITING
  8. KEVATRIL [Concomitant]
  9. ZOMETA [Concomitant]
     Indication: OSTEOPOROSIS PROPHYLAXIS
  10. CALENDULA OFFICINALIS [Concomitant]
     Indication: PALMAR-PLANTAR ERYTHRODYSAESTHESIA SYNDROME
     Route: 061

REACTIONS (1)
  - ACUTE VESTIBULAR SYNDROME [None]
